FAERS Safety Report 22033257 (Version 1)
Quarter: 2023Q1

REPORT INFORMATION
  Report Type: Spontaneous
  Country: NO (occurrence: NO)
  Receive Date: 20230224
  Receipt Date: 20230224
  Transmission Date: 20230418
  Serious: Yes (Other)
  Sender: FDA-Public Use
  Company Number: None

PATIENT
  Age: 23 Year
  Sex: Female
  Weight: 60 kg

DRUGS (3)
  1. ELOCON [Suspect]
     Active Substance: MOMETASONE FUROATE
     Indication: Dermatitis atopic
     Dosage: UNK, PRN (AS NECESSARY)
  2. MOMETASONE FUROATE [Suspect]
     Active Substance: MOMETASONE FUROATE
     Indication: Dermatitis atopic
     Dosage: 1X/DAY FOR 14 DAYS X MORE WHEN REQUIRED
     Dates: end: 202108
  3. ELIDEL [Suspect]
     Active Substance: PIMECROLIMUS
     Indication: Dermatitis atopic
     Dosage: UNK
     Dates: end: 202106

REACTIONS (14)
  - Dermatitis atopic [Not Recovered/Not Resolved]
  - Skin discolouration [Unknown]
  - Dermatitis [Unknown]
  - Weight decreased [Unknown]
  - Dermatitis exfoliative [Unknown]
  - Body temperature abnormal [Unknown]
  - Erythema [Unknown]
  - Skin warm [Unknown]
  - Skin burning sensation [Unknown]
  - Insomnia [Unknown]
  - Rash vesicular [Unknown]
  - Fatigue [Unknown]
  - Lymphadenopathy [Unknown]
  - Rash [Unknown]

NARRATIVE: CASE EVENT DATE: 20200101
